FAERS Safety Report 6479776-8 (Version None)
Quarter: 2009Q4

REPORT INFORMATION
  Report Type: 
  Country: None (occurrence: None)
  Receive Date: 20091208
  Receipt Date: 20091202
  Transmission Date: 20100525
  Serious: Yes (Death)
  Sender: FDA-Public Use
  Company Number: PHEH2009US15963

PATIENT
  Sex: Male
  Weight: 92.72 kg

DRUGS (6)
  1. EXJADE [Suspect]
     Indication: IRON OVERLOAD
     Dosage: 2000 MG/DAY
     Route: 048
     Dates: start: 20080912
  2. EXJADE [Suspect]
     Indication: APLASIA PURE RED CELL
  3. CELEBREX [Concomitant]
     Indication: PAIN
     Dosage: 200 MG/DAY
     Route: 048
  4. GABAPENTIN [Concomitant]
     Indication: INTERVERTEBRAL DISC PROTRUSION
     Dosage: 300 MG AT BEDTIME
     Route: 048
     Dates: start: 20080117
  5. OMEPRAZOLE [Concomitant]
     Indication: DYSPHAGIA
     Dosage: 20 MG, BID
     Route: 048
  6. SIMVASTATIN [Concomitant]
     Dosage: 40 MG, QD
     Route: 048

REACTIONS (1)
  - DISEASE PROGRESSION [None]
